FAERS Safety Report 7900093 (Version 8)
Quarter: 2013Q1

REPORT INFORMATION
  Report Type: Spontaneous
  Country: US (occurrence: US)
  Receive Date: 20110415
  Receipt Date: 20130128
  Transmission Date: 20140127
  Serious: Yes (Death, Hospitalization)
  Sender: FDA-Public Use
  Company Number: US-BIOGENIDEC-2011BI013276

PATIENT
  Age: 69 None
  Sex: Female

DRUGS (3)
  1. AVONEX [Suspect]
     Indication: MULTIPLE SCLEROSIS
     Route: 030
     Dates: start: 19980301, end: 20020604
  2. AVONEX [Suspect]
     Indication: MULTIPLE SCLEROSIS
     Route: 030
     Dates: start: 20050708, end: 201108
  3. COUMADIN [Concomitant]

REACTIONS (7)
  - Limb injury [Recovered/Resolved]
  - Fall [Recovered/Resolved]
  - Injury [Recovered/Resolved]
  - Thrombosis [Recovered/Resolved]
  - Ill-defined disorder [Fatal]
  - Vascular occlusion [Unknown]
  - Gait disturbance [Not Recovered/Not Resolved]
